FAERS Safety Report 9637677 (Version 3)
Quarter: 2014Q1

REPORT INFORMATION
  Report Type: Spontaneous
  Country: US (occurrence: US)
  Receive Date: 20131022
  Receipt Date: 20140117
  Transmission Date: 20141002
  Serious: Yes (Other)
  Sender: FDA-Public Use
  Company Number: US-MERCK-1310USA004031

PATIENT
  Age: 57 Year
  Sex: Female

DRUGS (5)
  1. PEGINTRON [Suspect]
     Indication: HEPATITIS C
     Dosage: DOSE: 0.4 CC, ONCE A WEEK
     Route: 058
     Dates: start: 20130919, end: 20131216
  2. REBETOL [Suspect]
     Indication: HEPATITIS C
     Dosage: 1000 MG, BID
     Route: 048
     Dates: start: 20130919, end: 20131216
  3. VICTRELIS [Suspect]
     Indication: HEPATITIS C
     Dosage: 2400 MG, TID
     Route: 048
     Dates: start: 20131018, end: 20131216
  4. GABAPENTIN [Concomitant]
     Dosage: 1 DF, QD
     Route: 048
  5. AMBIEN [Concomitant]
     Dosage: 1 DAILY

REACTIONS (53)
  - Adverse event [Unknown]
  - Swollen tongue [Unknown]
  - Urinary incontinence [Unknown]
  - Urinary incontinence [Unknown]
  - Skin ulcer haemorrhage [Unknown]
  - Eye ulcer [Unknown]
  - Feeling abnormal [Unknown]
  - Feeling abnormal [Unknown]
  - Gait disturbance [Unknown]
  - Nervous system disorder [Unknown]
  - Disturbance in attention [Unknown]
  - Balance disorder [Unknown]
  - Tremor [Unknown]
  - Laceration [Unknown]
  - Ear disorder [Unknown]
  - Ear pruritus [Unknown]
  - Staring [Unknown]
  - Muscle twitching [Unknown]
  - Injection site erythema [Unknown]
  - Injection site pain [Unknown]
  - Urine odour abnormal [Unknown]
  - Hepatitis C RNA increased [Unknown]
  - Drug dose omission [Unknown]
  - Increased tendency to bruise [Unknown]
  - Fall [Unknown]
  - Somnolence [Unknown]
  - Urinary tract infection [Unknown]
  - Skin ulcer [Unknown]
  - Visual impairment [Unknown]
  - Oral pain [Unknown]
  - Oral pain [Unknown]
  - Hypoaesthesia [Unknown]
  - Glossodynia [Unknown]
  - Parosmia [Unknown]
  - Hypoaesthesia [Unknown]
  - Paraesthesia [Unknown]
  - Gingival bleeding [Unknown]
  - Vision blurred [Unknown]
  - Chest pain [Unknown]
  - Dysphonia [Unknown]
  - Feeling of despair [Unknown]
  - Swollen tongue [Unknown]
  - Pruritus [Unknown]
  - Anxiety [Unknown]
  - Drug ineffective [Unknown]
  - Decreased appetite [Unknown]
  - Dry mouth [Unknown]
  - Anaemia [Unknown]
  - Anaemia [Unknown]
  - Haemoglobin decreased [Unknown]
  - Haemoglobin decreased [Unknown]
  - Haemoglobin decreased [Unknown]
  - Insomnia [Unknown]
